FAERS Safety Report 5549856-X (Version None)
Quarter: 2007Q4

REPORT INFORMATION
  Report Type: 
  Country: None (occurrence: None)
  Receive Date: 20071206
  Receipt Date: 20071206
  Transmission Date: 20080405
  Serious: No
  Sender: FDA-Public Use
  Company Number: None

PATIENT
  Age: 60 Year
  Sex: Male

DRUGS (1)
  1. BUPROPION HCL [Suspect]
     Dosage: 150MG BID PO
     Route: 048
     Dates: start: 20071119, end: 20071130

REACTIONS (2)
  - CHEST PAIN [None]
  - RASH [None]
